FAERS Safety Report 10193557 (Version 1)
Quarter: 2014Q2

REPORT INFORMATION
  Report Type: Spontaneous
  Country: US (occurrence: US)
  Receive Date: 20140524
  Receipt Date: 20140524
  Transmission Date: 20141212
  Serious: No
  Sender: FDA-Public Use
  Company Number: US-SA-2013SA125119

PATIENT
  Age: 73 Year
  Sex: Male

DRUGS (2)
  1. SOLOSTAR [Suspect]
  2. LANTUS SOLOSTAR [Suspect]
     Dosage: DOSE:15 UNIT(S)
     Route: 058

REACTIONS (5)
  - Injury associated with device [Unknown]
  - Pain [Unknown]
  - Seasonal allergy [Unknown]
  - Hearing impaired [Unknown]
  - Arthritis [Unknown]
